FAERS Safety Report 10648042 (Version 1)
Quarter: 2014Q4

REPORT INFORMATION
  Report Type: Spontaneous
  Country: US (occurrence: None)
  Receive Date: 20141211
  Receipt Date: 20141211
  Transmission Date: 20150529
  Serious: No
  Sender: FDA-Public Use
  Company Number: None

PATIENT
  Age: 86 Year
  Sex: Male

DRUGS (1)
  1. XTANDI [Suspect]
     Active Substance: ENZALUTAMIDE
     Indication: PROSTATE CANCER
     Route: 048
     Dates: start: 20140816, end: 20141106

REACTIONS (3)
  - Metastases to bone [None]
  - Malignant neoplasm progression [None]
  - Prostate cancer [None]

NARRATIVE: CASE EVENT DATE: 20141106
